FAERS Safety Report 24814600 (Version 2)
Quarter: 2025Q2

REPORT INFORMATION
  Report Type: Spontaneous
  Country: US (occurrence: US)
  Receive Date: 20250107
  Receipt Date: 20250619
  Transmission Date: 20250717
  Serious: Yes (Death, Other)
  Sender: AMGEN
  Company Number: US-AMGEN-USASP2024255629

PATIENT
  Age: 34 Year
  Sex: Male

DRUGS (5)
  1. PREDNISONE [Suspect]
     Active Substance: PREDNISONE
     Indication: Autoimmune enteropathy
     Route: 065
  2. INFLIXIMAB [Suspect]
     Active Substance: INFLIXIMAB
     Indication: Autoimmune enteropathy
     Route: 065
  3. ADALIMUMAB [Suspect]
     Active Substance: ADALIMUMAB
     Indication: Autoimmune enteropathy
     Route: 065
  4. CHOLESTYRAMINE [Concomitant]
     Active Substance: CHOLESTYRAMINE
     Indication: Product used for unknown indication
  5. BUDESONIDE [Concomitant]
     Active Substance: BUDESONIDE
     Indication: Autoimmune enteropathy

REACTIONS (13)
  - Pneumonia [Fatal]
  - Liver injury [Unknown]
  - Thymoma [Recovering/Resolving]
  - Osteomyelitis [Recovering/Resolving]
  - Vanishing bile duct syndrome [Unknown]
  - Thymoma malignant [Unknown]
  - Clostridium difficile colitis [Unknown]
  - Cytomegalovirus viraemia [Unknown]
  - Pancreatic failure [Unknown]
  - Therapeutic product effect incomplete [Unknown]
  - Drug specific antibody present [Recovering/Resolving]
  - Diarrhoea [Unknown]
  - Off label use [Unknown]
